FAERS Safety Report 7481145-9 (Version None)
Quarter: 2011Q2

REPORT INFORMATION
  Report Type: 
  Country: None (occurrence: None)
  Receive Date: 20110516
  Receipt Date: 20110504
  Transmission Date: 20111010
  Serious: Yes (Other)
  Sender: FDA-Public Use
  Company Number: PHHY2011FR16360

PATIENT
  Sex: Male
  Weight: 59 kg

DRUGS (2)
  1. TEGRETOL [Suspect]
     Indication: CONVULSION
     Dosage: 200 MG, QD
     Route: 048
     Dates: start: 20100908
  2. TEGRETOL [Suspect]
     Dosage: 300 MG, QD
     Route: 048
     Dates: start: 20100901, end: 20101130

REACTIONS (2)
  - DIARRHOEA [None]
  - COLITIS [None]
